FAERS Safety Report 12911095 (Version 1)
Quarter: 2016Q4

REPORT INFORMATION
  Report Type: Spontaneous
  Country: CA (occurrence: CA)
  Receive Date: 20161104
  Receipt Date: 20161104
  Transmission Date: 20170207
  Serious: Yes (Other)
  Sender: FDA-Public Use
  Company Number: CA-FRESENIUS KABI-FK201608425

PATIENT
  Age: 12 Year

DRUGS (2)
  1. VANCOMYCIN (MANUFACTURER UNKNOWN) [Suspect]
     Active Substance: VANCOMYCIN
     Indication: MENINGITIS BACTERIAL
     Route: 042
  2. CEFTRIAXONE SODIUM FOR INJECTION BP [Suspect]
     Active Substance: CEFTRIAXONE SODIUM
     Indication: MENINGITIS BACTERIAL
     Route: 042

REACTIONS (4)
  - Urticaria [Recovered/Resolved]
  - Dyspnoea [Recovered/Resolved]
  - Lip swelling [Recovered/Resolved]
  - Nasal congestion [Recovered/Resolved]
